FAERS Safety Report 14517311 (Version 1)
Quarter: 2018Q1

REPORT INFORMATION
  Report Type: Spontaneous
  Country: US (occurrence: US)
  Receive Date: 20180209
  Receipt Date: 20180209
  Transmission Date: 20180509
  Serious: No
  Sender: FDA-Public Use
  Company Number: None

PATIENT
  Age: 72 Year
  Sex: Female

DRUGS (1)
  1. PROLIA [Suspect]
     Active Substance: DENOSUMAB
     Dosage: PROLIA 60MG EVERY 6 MONTH SQ
     Route: 058

REACTIONS (3)
  - Pyrexia [None]
  - Rash [None]
  - Bronchitis [None]

NARRATIVE: CASE EVENT DATE: 20170708
